FAERS Safety Report 8351010-3 (Version None)
Quarter: 2012Q2

REPORT INFORMATION
  Report Type: 
  Country: None (occurrence: None)
  Receive Date: 20120510
  Receipt Date: 20120504
  Transmission Date: 20120825
  Serious: Yes (Hospitalization)
  Sender: FDA-Public Use
  Company Number: US-BAYER-2011-082330

PATIENT
  Age: 29 Year
  Sex: Female
  Weight: 58.05 kg

DRUGS (5)
  1. MAGNESIUM HYDROXIDE TAB [Concomitant]
     Indication: ABDOMINAL PAIN
  2. YAZ [Suspect]
     Dosage: UNK
     Dates: start: 20021001, end: 20050517
  3. YASMIN [Suspect]
     Dosage: UNK
     Dates: start: 20021001, end: 20050517
  4. PROTONIX [Concomitant]
     Indication: ABDOMINAL PAIN
  5. BACTRIM [Concomitant]
     Indication: URINARY TRACT INFECTION

REACTIONS (4)
  - CHOLECYSTITIS CHRONIC [None]
  - INJURY [None]
  - PAIN [None]
  - GALLBLADDER DISORDER [None]
